FAERS Safety Report 7168273-2 (Version None)
Quarter: 2010Q4

REPORT INFORMATION
  Report Type: 
  Country: None (occurrence: None)
  Receive Date: 20101216
  Receipt Date: 20101202
  Transmission Date: 20110411
  Serious: Yes (Other)
  Sender: FDA-Public Use
  Company Number: GB-AMGEN-GBRSP2010008214

PATIENT

DRUGS (3)
  1. ETANERCEPT [Suspect]
     Indication: PSORIASIS
     Dosage: UNK
  2. ETANERCEPT [Suspect]
     Dosage: 50 MG, UNK
     Route: 058
  3. EFLIXIMAMB [Concomitant]

REACTIONS (2)
  - LICHENOID KERATOSIS [None]
  - RASH MACULAR [None]
